FAERS Safety Report 19956683 (Version 3)
Quarter: 2022Q1

REPORT INFORMATION
  Report Type: Spontaneous
  Country: US (occurrence: US)
  Receive Date: 20211014
  Receipt Date: 20220104
  Transmission Date: 20220423
  Serious: Yes (Other)
  Sender: FDA-Public Use
  Company Number: US-TEVA-2021-US-1963687

PATIENT
  Age: 89 Year
  Sex: Female
  Weight: 70.31 kg

DRUGS (3)
  1. VENLAFAXINE HYDROCHLORIDE [Interacting]
     Active Substance: VENLAFAXINE HYDROCHLORIDE
     Indication: Depression
     Dosage: 185 MILLIGRAM DAILY; 150MG AND ADDITIONAL 35 MG , FOR THE PAST 5 YEARS
     Dates: start: 2014, end: 20201030
  2. OMEPRAZOLE [Interacting]
     Active Substance: OMEPRAZOLE
     Indication: Gastric pH decreased
     Dosage: TOOK 3 DOSES
     Route: 048
     Dates: start: 20201031
  3. PROZAC [Suspect]
     Active Substance: FLUOXETINE HYDROCHLORIDE
     Dosage: APPROXIMATELY 3 YEARS
     Route: 065

REACTIONS (16)
  - Gastric ulcer [Recovered/Resolved]
  - Drug ineffective [Unknown]
  - Insomnia [Unknown]
  - Illness [Recovered/Resolved]
  - Eating disorder [Unknown]
  - Depressed mood [Unknown]
  - Dry mouth [Unknown]
  - Drug interaction [Unknown]
  - Poor quality sleep [Unknown]
  - Gait disturbance [Unknown]
  - Depression [Unknown]
  - Bedridden [Unknown]
  - Fatigue [Unknown]
  - Feeling abnormal [Unknown]
  - Asthenia [Recovering/Resolving]
  - Dyspnoea [Unknown]

NARRATIVE: CASE EVENT DATE: 20201001
